FAERS Safety Report 12578993 (Version 3)
Quarter: 2016Q3

REPORT INFORMATION
  Report Type: Report from Study
  Country: BR (occurrence: BR)
  Receive Date: 20160721
  Receipt Date: 20160826
  Transmission Date: 20161109
  Serious: Yes (Hospitalization)
  Sender: FDA-Public Use
  Company Number: PHHY2016BR098750

PATIENT
  Age: 45 Year
  Sex: Female
  Weight: 54 kg

DRUGS (1)
  1. GILENYA [Suspect]
     Active Substance: FINGOLIMOD HYDROCHLORIDE
     Indication: MULTIPLE SCLEROSIS
     Dosage: 0.5 MG, QD
     Route: 048
     Dates: start: 2012

REACTIONS (6)
  - Multiple sclerosis relapse [Recovering/Resolving]
  - Visual acuity reduced [Recovering/Resolving]
  - Visual impairment [Recovering/Resolving]
  - Paraesthesia [Recovering/Resolving]
  - Optic neuritis [Unknown]
  - Hypoacusis [Unknown]

NARRATIVE: CASE EVENT DATE: 201605
